FAERS Safety Report 7520336-5 (Version None)
Quarter: 2011Q2

REPORT INFORMATION
  Report Type: 
  Country: None (occurrence: None)
  Receive Date: 20110602
  Receipt Date: 20100421
  Transmission Date: 20111010
  Serious: No
  Sender: FDA-Public Use
  Company Number: US-BAYER-201020739NA

PATIENT
  Sex: Female

DRUGS (1)
  1. AVELOX [Suspect]
     Indication: PRODUCT USED FOR UNKNOWN INDICATION
     Route: 048

REACTIONS (6)
  - VERTIGO [None]
  - VOMITING [None]
  - BURNING SENSATION [None]
  - NAUSEA [None]
  - HEADACHE [None]
  - MUSCULAR WEAKNESS [None]
